FAERS Safety Report 8757806 (Version 2)
Quarter: 2012Q4

REPORT INFORMATION
  Report Type: 
  Country: FR (occurrence: FR)
  Receive Date: 20120828
  Receipt Date: 20120831
  Transmission Date: 20130627
  Serious: Yes (Hospitalization, Other)
  Sender: FDA-Public Use
  Company Number: FR-JNJFOC-20120810776

PATIENT
  Age: 67 Year
  Sex: Female

DRUGS (13)
  1. REMICADE [Suspect]
     Indication: RHEUMATOID ARTHRITIS
     Route: 042
     Dates: start: 2002, end: 201006
  2. METOJECT [Suspect]
     Indication: RHEUMATOID ARTHRITIS
     Route: 048
     Dates: start: 1998, end: 201204
  3. ENBREL [Suspect]
     Indication: RHEUMATOID ARTHRITIS
     Route: 058
     Dates: start: 201006, end: 201010
  4. ABATACEPT [Suspect]
     Indication: RHEUMATOID ARTHRITIS
     Route: 042
     Dates: start: 20101011
  5. ABATACEPT [Suspect]
     Indication: RHEUMATOID ARTHRITIS
     Route: 042
     Dates: start: 20101025, end: 20120323
  6. PREDNISONE [Concomitant]
     Route: 065
  7. CORTANCYL [Concomitant]
     Indication: RHEUMATOID ARTHRITIS
     Route: 065
  8. FLUDEX [Concomitant]
     Route: 065
  9. FLECAINE [Concomitant]
     Route: 065
  10. EUPANTOL [Concomitant]
     Route: 065
  11. LEVOTHYROX [Concomitant]
     Route: 065
  12. ZOLPIDEM [Concomitant]
     Route: 065
  13. PERINDOPRIL [Concomitant]
     Route: 065

REACTIONS (6)
  - Acute myeloid leukaemia [Recovered/Resolved with Sequelae]
  - Cerebrovascular accident [Unknown]
  - Knee arthroplasty [Unknown]
  - Goitre [Unknown]
  - Lung disorder [Unknown]
  - Right ventricular failure [Unknown]
